FAERS Safety Report 5184846-0 (Version None)
Quarter: 2006Q4

REPORT INFORMATION
  Report Type: 
  Country: None (occurrence: None)
  Receive Date: 20061220
  Receipt Date: 20060428
  Transmission Date: 20070319
  Serious: No
  Sender: FDA-Public Use
  Company Number: US-GLAXOSMITHKLINE-A0603786A

PATIENT
  Age: 64 Year

DRUGS (1)
  1. NICODERM CQ [Suspect]

REACTIONS (7)
  - ABNORMAL DREAMS [None]
  - APPLICATION SITE IRRITATION [None]
  - APPLICATION SITE PARAESTHESIA [None]
  - APPLICATION SITE PRURITUS [None]
  - INSOMNIA [None]
  - MIDDLE INSOMNIA [None]
  - NICOTINE DEPENDENCE [None]
